FAERS Safety Report 13818977 (Version 1)
Quarter: 2017Q3

REPORT INFORMATION
  Report Type: Report from Study
  Country: US (occurrence: US)
  Receive Date: 20170731
  Receipt Date: 20170731
  Transmission Date: 20171127
  Serious: No
  Sender: FDA-Public Use
  Company Number: US-EXELIXIS-CABO-17008736

PATIENT
  Sex: Male

DRUGS (1)
  1. CABOMETYX [Suspect]
     Active Substance: CABOZANTINIB S-MALATE
     Indication: RENAL CANCER
     Dosage: 40 MG, QD
     Route: 048
     Dates: start: 20170204

REACTIONS (6)
  - Oral discomfort [Unknown]
  - Throat irritation [Unknown]
  - Asthenia [Unknown]
  - Glossodynia [Unknown]
  - Diarrhoea [Unknown]
  - Fatigue [Unknown]
